FAERS Safety Report 6092466-9 (Version None)
Quarter: 2009Q1

REPORT INFORMATION
  Report Type: 
  Country: None (occurrence: None)
  Receive Date: 20090225
  Receipt Date: 20090218
  Transmission Date: 20090719
  Serious: Yes (Disabling, Other)
  Sender: FDA-Public Use
  Company Number: GB-MERCK-0902GBR00092

PATIENT
  Age: 80 Year
  Sex: Male

DRUGS (19)
  1. ZOCOR [Suspect]
     Route: 065
     Dates: start: 20080225, end: 20081114
  2. ASPIRIN [Concomitant]
     Route: 065
  3. ATORVASTATIN [Concomitant]
     Route: 065
  4. CALCIUM (UNSPECIFIED) [Concomitant]
     Route: 065
     Dates: start: 20080225
  5. CLOPIDOGREL BISULFATE [Concomitant]
     Route: 065
  6. ACETAMINOPHEN AND DIHYDROCODEINE BITARTRATE [Concomitant]
     Route: 065
  7. DILTIAZEM HYDROCHLORIDE [Concomitant]
     Route: 065
  8. ERGOCALCIFEROL [Concomitant]
     Route: 065
     Dates: start: 20080225
  9. FLUOXETINE [Concomitant]
     Route: 065
  10. LACTULOSE [Concomitant]
     Route: 065
  11. COZAAR [Concomitant]
     Route: 065
  12. NICORANDIL [Concomitant]
     Route: 065
  13. NITROGLYCERIN [Concomitant]
     Route: 065
  14. OMEPRAZOLE [Concomitant]
     Route: 065
  15. PREDNISOLONE [Concomitant]
     Route: 065
  16. ALBUTEROL [Concomitant]
     Route: 065
  17. FLUTICASONE PROPIONATE AND SALMETEROL XINAFOATE [Concomitant]
  18. TERBUTALINE SULFATE [Concomitant]
     Route: 065
  19. ZOPICLONE [Concomitant]
     Route: 065

REACTIONS (1)
  - PAIN IN EXTREMITY [None]
